FAERS Safety Report 4816944-2 (Version None)
Quarter: 2005Q3

REPORT INFORMATION
  Report Type: 
  Country: None (occurrence: None)
  Receive Date: 20050929
  Receipt Date: 20050621
  Transmission Date: 20060218
  Serious: No
  Sender: FDA-Public Use
  Company Number: 05P-163-0303729-00

PATIENT
  Age: 49 Year
  Sex: Female
  Weight: 72.1219 kg

DRUGS (8)
  1. HUMIRA [Suspect]
     Indication: RHEUMATOID ARTHRITIS
     Dosage: 40 MG, 1 IN 2 WK, SUBCUTANEOUS
     Route: 058
     Dates: start: 20040101, end: 20050401
  2. METHOTREXATE [Concomitant]
  3. PREDNISONE [Concomitant]
  4. IRON [Concomitant]
  5. FOLIC ACID [Concomitant]
  6. PROMETHAZINE [Concomitant]
  7. ZOLPIDEM TARTRATE [Concomitant]
  8. HYZAAR [Concomitant]

REACTIONS (5)
  - ANAEMIA [None]
  - HEPATIC ENZYME INCREASED [None]
  - PAIN [None]
  - TOOTH FRACTURE [None]
  - TOOTH INFECTION [None]
